FAERS Safety Report 9364509 (Version 2)
Quarter: 2013Q3

REPORT INFORMATION
  Report Type: Report from Study
  Country: CA (occurrence: CA)
  Receive Date: 20130624
  Receipt Date: 20130806
  Transmission Date: 20140515
  Serious: Yes (Hospitalization)
  Sender: FDA-Public Use
  Company Number: CA-GLAXOSMITHKLINE-Z0020022A

PATIENT
  Age: 59 Year
  Sex: Male
  Weight: 74.1 kg

DRUGS (5)
  1. OFATUMUMAB [Suspect]
     Indication: NON-HODGKIN^S LYMPHOMA
     Dosage: 1000MG CYCLIC
     Route: 042
     Dates: start: 20130606
  2. BENDAMUSTINE [Suspect]
     Indication: NON-HODGKIN^S LYMPHOMA
     Dosage: 120MGM2 CYCLIC
     Route: 042
     Dates: start: 20120301, end: 20120803
  3. BENADRYL [Concomitant]
     Indication: ALLERGY PROPHYLAXIS
     Dosage: 50MG AS REQUIRED
     Route: 048
     Dates: start: 20130606
  4. RANITIDINE [Concomitant]
     Indication: PROPHYLAXIS OF NAUSEA AND VOMITING
     Dosage: 150MG AS REQUIRED
     Route: 048
     Dates: start: 20130606
  5. METOCLOPRAMIDE [Concomitant]
     Indication: PROPHYLAXIS OF NAUSEA AND VOMITING
     Dosage: 10MG AS REQUIRED
     Route: 048
     Dates: start: 20130606

REACTIONS (1)
  - Adverse drug reaction [Recovered/Resolved]
